FAERS Safety Report 6311913-8 (Version None)
Quarter: 2009Q3

REPORT INFORMATION
  Report Type: 
  Country: None (occurrence: None)
  Receive Date: 20090817
  Receipt Date: 20090812
  Transmission Date: 20100115
  Serious: Yes (Hospitalization, Disabling, Other)
  Sender: FDA-Public Use
  Company Number: DE-BRISTOL-MYERS SQUIBB COMPANY-14374318

PATIENT
  Age: 69 Year
  Sex: Female
  Weight: 51 kg

DRUGS (10)
  1. CETUXIMAB [Suspect]
     Indication: COLORECTAL CANCER
     Dosage: RECENT INFUSION ON 02OCT08,CONTINUED FROM 16OCT08 250MG/M2
     Route: 042
     Dates: start: 20080627
  2. IRINOTECAN HCL [Suspect]
     Indication: COLORECTAL CANCER
     Dosage: THERAPY STARTED ON 27-JUN-2008,RECENT INFUSION ON 02OCT08 180MG/M2
     Route: 042
     Dates: start: 20080627, end: 20081002
  3. FOLINIC ACID [Suspect]
     Indication: COLORECTAL CANCER
     Dosage: THERAPY STARTED ON 27-JUN-2008,RECENT INFUSION ON 02OCT08,ALSO IV BOLUS,400MG/M2 400MG/M2
     Route: 042
     Dates: start: 20080627, end: 20081002
  4. FLUOROURACIL [Suspect]
     Indication: COLORECTAL CANCER
     Dosage: 27-JUN-2008-04OCT08:590 MG + 27JUN08-02OCT08:2400MG/M2,1/2WK LAST INF:04OCT08 400MG/M2
     Route: 040
     Dates: start: 20080627, end: 20081004
  5. LOPERAMIDE [Concomitant]
     Dosage: 1 DOSAGEFORM = 4 X 2 (UNITS NOT MENTIONED)
  6. PANTOZOL [Concomitant]
     Dosage: 1 DOSAGEFORM = 20 (UNITS NOT MENTIONED)
  7. EUTHYROX [Concomitant]
     Dosage: 1 DOSAGEFORM = 100 (UNITS NOT MENTIONED)
  8. ASPIRIN [Concomitant]
  9. METOCLOPRAMIDE [Concomitant]
  10. VERGENTAN [Concomitant]
     Route: 048

REACTIONS (4)
  - DIARRHOEA [None]
  - SYNCOPE [None]
  - UROSEPSIS [None]
  - VOMITING [None]
